FAERS Safety Report 9174974 (Version 4)
Quarter: 2013Q3

REPORT INFORMATION
  Report Type: Spontaneous
  Country: US (occurrence: US)
  Receive Date: 20130320
  Receipt Date: 20130904
  Transmission Date: 20140515
  Serious: Yes (Hospitalization)
  Sender: FDA-Public Use
  Company Number: US-GLAXOSMITHKLINE-A1016406A

PATIENT
  Sex: Male

DRUGS (1)
  1. FLOLAN [Suspect]
     Indication: COR PULMONALE CHRONIC
     Dosage: 37NGKM CONTINUOUS
     Route: 042
     Dates: start: 20110904

REACTIONS (3)
  - Renal failure [Not Recovered/Not Resolved]
  - Liver transplant [Unknown]
  - Fluid retention [Not Recovered/Not Resolved]
